FAERS Safety Report 6719452-7 (Version None)
Quarter: 2010Q2

REPORT INFORMATION
  Report Type: 
  Country: None (occurrence: None)
  Receive Date: 20100510
  Receipt Date: 20100510
  Transmission Date: 20101027
  Serious: Yes (Life-Threatening, Hospitalization)
  Sender: FDA-Public Use
  Company Number: None

PATIENT
  Age: 47 Year
  Sex: Male
  Weight: 62.2 kg

DRUGS (11)
  1. ISONIAZID [Suspect]
     Dosage: 300 MG
  2. ISONIAZID [Concomitant]
  3. VITAMIN B6 [Concomitant]
  4. AZITHROMYCIN 400MG [Concomitant]
  5. HEPSERA 10MG [Concomitant]
  6. OPAMAX 50MG [Concomitant]
  7. FERROUS SULFATE TAB [Concomitant]
  8. SEVELAMIR 800MG [Concomitant]
  9. DIOVAN [Concomitant]
  10. DIALYVIT [Concomitant]
  11. OMEPRAZOLE [Concomitant]

REACTIONS (3)
  - HYPOGLYCAEMIA [None]
  - INSULIN AUTOIMMUNE SYNDROME [None]
  - UNRESPONSIVE TO STIMULI [None]
